FAERS Safety Report 4674592-1 (Version None)
Quarter: 2005Q2

REPORT INFORMATION
  Report Type: 
  Country: None (occurrence: None)
  Receive Date: 20050526
  Receipt Date: 20050518
  Transmission Date: 20051028
  Serious: Yes (Disabling)
  Sender: FDA-Public Use
  Company Number: PHHO2005CA08096

PATIENT
  Sex: Female

DRUGS (1)
  1. ZELNORM [Suspect]
     Indication: IRRITABLE BOWEL SYNDROME

REACTIONS (3)
  - ABDOMINAL PAIN LOWER [None]
  - CYSTITIS INTERSTITIAL [None]
  - NEPHROLITHIASIS [None]
